FAERS Safety Report 6056960-9 (Version None)
Quarter: 2009Q1

REPORT INFORMATION
  Report Type: 
  Country: None (occurrence: None)
  Receive Date: 20090129
  Receipt Date: 20090120
  Transmission Date: 20090719
  Serious: Yes (Hospitalization)
  Sender: FDA-Public Use
  Company Number: JP-AMGEN-US315109

PATIENT
  Sex: Male
  Weight: 59 kg

DRUGS (9)
  1. ENBREL [Suspect]
     Indication: RHEUMATOID ARTHRITIS
     Route: 058
     Dates: start: 20080908
  2. ENBREL [Suspect]
     Route: 058
     Dates: start: 20081030
  3. MEDROL [Suspect]
     Indication: DRUG USE FOR UNKNOWN INDICATION
     Route: 048
     Dates: start: 20080430
  4. FOLIAMIN [Concomitant]
     Route: 048
     Dates: start: 20080517
  5. BENET [Concomitant]
     Route: 048
     Dates: start: 20080805
  6. TAKEPRON [Concomitant]
     Indication: PROPHYLAXIS AGAINST GASTROINTESTINAL ULCER
     Route: 048
     Dates: start: 20080430
  7. LOXONIN [Concomitant]
     Indication: ANALGESIA
     Route: 048
     Dates: start: 20080805
  8. CYTOTEC [Concomitant]
     Route: 048
     Dates: start: 20080805
  9. METOLATE [Concomitant]
     Route: 048
     Dates: start: 20080709

REACTIONS (3)
  - HYPERLIPIDAEMIA [None]
  - HYPERTENSION [None]
  - LACUNAR INFARCTION [None]
